APPROVED DRUG PRODUCT: ALTAFLUOR BENOX
Active Ingredient: BENOXINATE HYDROCHLORIDE; FLUORESCEIN SODIUM
Strength: 0.4%;0.25%
Dosage Form/Route: SOLUTION/DROPS;OPHTHALMIC
Application: N208582 | Product #001
Applicant: ALTAIRE PHARMACEUTICALS INC
Approved: Dec 14, 2017 | RLD: Yes | RS: Yes | Type: RX